FAERS Safety Report 9784973 (Version 2)
Quarter: 2014Q1

REPORT INFORMATION
  Report Type: Spontaneous
  Country: CH (occurrence: CH)
  Receive Date: 20131227
  Receipt Date: 20140204
  Transmission Date: 20141002
  Serious: Yes (Other)
  Sender: FDA-Public Use
  Company Number: CH-BRISTOL-MYERS SQUIBB COMPANY-19929181

PATIENT
  Age: 68 Year
  Sex: Male

DRUGS (13)
  1. ORENCIA [Suspect]
     Indication: RHEUMATOID ARTHRITIS
     Dosage: 250 MG/VIAL, 3 VIAL DOSE
     Route: 042
     Dates: start: 201205
  2. ARAVA [Concomitant]
  3. ASPIRIN [Concomitant]
  4. STRUCTUM [Concomitant]
  5. METO ZEROK [Concomitant]
  6. SOTALEX [Concomitant]
  7. VENORUTON [Concomitant]
  8. ZESTRIL [Concomitant]
  9. PANTOZOL [Concomitant]
     Dosage: 1DF=40-UNITS NOS
  10. VOLTAREN [Concomitant]
  11. NOVALGIN [Concomitant]
  12. GLUCOSAMINE [Concomitant]
  13. MAGNESIUM [Concomitant]

REACTIONS (1)
  - Neuralgic amyotrophy [Not Recovered/Not Resolved]
